FAERS Safety Report 19375247 (Version 1)
Quarter: 2021Q2

REPORT INFORMATION
  Report Type: Spontaneous
  Country: GB (occurrence: GB)
  Receive Date: 20210604
  Receipt Date: 20210604
  Transmission Date: 20210717
  Serious: Yes (Life-Threatening)
  Sender: FDA-Public Use
  Company Number: GB-PFIZER INC-2021582462

PATIENT
  Age: 65 Year
  Sex: Female
  Weight: 75 kg

DRUGS (10)
  1. CETIRIZINE [Concomitant]
     Active Substance: CETIRIZINE HYDROCHLORIDE
     Indication: ILL-DEFINED DISORDER
     Dosage: 1 DF, DAILY (TAKE ONE DAILY (CAN BE TAKEN BD IF NO IMPRVOEMENT))
     Dates: start: 20210419, end: 20210426
  2. NYSTATIN. [Concomitant]
     Active Substance: NYSTATIN
     Indication: ILL-DEFINED DISORDER
     Dosage: USE AS DIRECTED
     Dates: start: 20210419, end: 20210426
  3. CEFALEXIN [Concomitant]
     Active Substance: CEPHALEXIN
     Indication: ILL-DEFINED DISORDER
     Dosage: 1 DF, 4X/DAY (TAKE ONE 4 TIMES/DAY)
     Dates: start: 20210331, end: 20210407
  4. VANCOMYCIN HCL [Suspect]
     Active Substance: VANCOMYCIN HYDROCHLORIDE
     Dosage: 250 MG
     Route: 048
     Dates: start: 20210419
  5. CLOTRIMAZOLE. [Concomitant]
     Active Substance: CLOTRIMAZOLE
     Indication: ILL-DEFINED DISORDER
     Dosage: USE PESSARY AT NIGHT AND CREAM TO BE APPLIED TW
     Dates: start: 20210419, end: 20210424
  6. DIORALYTE [CITRIC ACID;GLUCOSE;POTASSIUM CHLORIDE;SODIUM BICARBONATE;S [Concomitant]
     Indication: ILL-DEFINED DISORDER
     Dosage: 1 DF, AS NEEDED (TAKE ONE AS NEEDED)
     Dates: start: 20210518
  7. NITROFURANTOIN. [Concomitant]
     Active Substance: NITROFURANTOIN
     Indication: ILL-DEFINED DISORDER
     Dosage: 1 DF, 2X/DAY (TAKE ONE TWICE DAILY)
     Dates: start: 20210329, end: 20210401
  8. FLUOXETINE [Concomitant]
     Active Substance: FLUOXETINE HYDROCHLORIDE
     Indication: ILL-DEFINED DISORDER
     Dosage: 2 DF, DAILY (TWO DAILY)
     Dates: start: 20201111
  9. METRONIDAZOLE. [Concomitant]
     Active Substance: METRONIDAZOLE
     Indication: ILL-DEFINED DISORDER
     Dosage: 1 DF, 3X/DAY (TAKE ONE 3 TIMES/DAY OR NO ALCOHOL WHILE TAKING)
     Dates: start: 20210420, end: 20210427
  10. HYDROCORTISONE. [Concomitant]
     Active Substance: HYDROCORTISONE
     Indication: ILL-DEFINED DISORDER
     Dosage: UNK UNK, 2X/DAY (APPLY TWICE DAILY)
     Dates: start: 20210420, end: 20210427

REACTIONS (2)
  - Drug hypersensitivity [Unknown]
  - Dermatitis allergic [Recovered/Resolved]
